FAERS Safety Report 10378094 (Version 2)
Quarter: 2014Q4

REPORT INFORMATION
  Report Type: Spontaneous
  Country: AU (occurrence: AU)
  Receive Date: 20140812
  Receipt Date: 20141027
  Transmission Date: 20150528
  Serious: Yes (Hospitalization, Other)
  Sender: FDA-Public Use
  Company Number: AU-009507513-1408AUS005340

PATIENT
  Age: 54 Year
  Sex: Male

DRUGS (6)
  1. ERTAPENEM SODIUM [Suspect]
     Active Substance: ERTAPENEM SODIUM
     Indication: BACTERIAL INFECTION
     Dosage: 1 G, QD
     Route: 042
  2. CLAVULANATE POTASSIUM (+) TICARCILLIN DISODIUM [Concomitant]
     Indication: BACTERIAL INFECTION
  3. CEFTRIAXONE SODIUM. [Concomitant]
     Active Substance: CEFTRIAXONE SODIUM
     Indication: BACTERIAL INFECTION
  4. LINEZOLID. [Concomitant]
     Active Substance: LINEZOLID
     Indication: BACTERIAL INFECTION
     Dosage: 600 MG, BID
     Route: 048
  5. METRONIDAZOLE. [Concomitant]
     Active Substance: METRONIDAZOLE
     Indication: BACTERIAL INFECTION
  6. VANCOMYCIN [Concomitant]
     Active Substance: VANCOMYCIN
     Indication: BACTERIAL INFECTION

REACTIONS (3)
  - Substance-induced psychotic disorder [Recovered/Resolved]
  - Toxic encephalopathy [Unknown]
  - Neurotoxicity [Unknown]
